FAERS Safety Report 9478891 (Version 1)
Quarter: 2013Q3

REPORT INFORMATION
  Report Type: Spontaneous
  Country: US (occurrence: US)
  Receive Date: 20130827
  Receipt Date: 20130827
  Transmission Date: 20140515
  Serious: Yes (Other)
  Sender: FDA-Public Use
  Company Number: US-BAYER-2013-103142

PATIENT
  Age: 66 Year
  Sex: Female

DRUGS (2)
  1. BETASERON [Suspect]
     Indication: MULTIPLE SCLEROSIS
  2. COPAXONE [Suspect]
     Dosage: UNK
     Dates: start: 20130515

REACTIONS (1)
  - Neoplasm malignant [Recovered/Resolved]
